FAERS Safety Report 4783027-X (Version None)
Quarter: 2005Q3

REPORT INFORMATION
  Report Type: 
  Country: None (occurrence: None)
  Receive Date: 20050929
  Receipt Date: 20050914
  Transmission Date: 20060218
  Serious: Yes (Other)
  Sender: FDA-Public Use
  Company Number: FRWYE979215SEP05

PATIENT
  Age: 35 Year
  Sex: Female

DRUGS (1)
  1. ENBREL [Suspect]
     Indication: ANKYLOSING SPONDYLITIS
     Dosage: UNSPEC. FROM APR-2004, THEN 25 MG 1 TIME EVERY 2 MONTHS FROM UNSPEC. DATE
     Route: 058
     Dates: start: 20040401

REACTIONS (2)
  - CERVICAL DYSPLASIA [None]
  - CERVICITIS HUMAN PAPILLOMA VIRUS [None]
